FAERS Safety Report 7770304-3 (Version None)
Quarter: 2011Q3

REPORT INFORMATION
  Report Type: 
  Country: None (occurrence: None)
  Receive Date: 20110922
  Receipt Date: 20100910
  Transmission Date: 20111222
  Serious: No
  Sender: FDA-Public Use
  Company Number: US-ASTRAZENECA-2010SE42691

PATIENT
  Age: 62 Year
  Sex: Female

DRUGS (5)
  1. SEROQUEL XR [Suspect]
     Route: 048
  2. FENTANYL-100 [Concomitant]
  3. SEROQUEL XR [Suspect]
     Indication: BIPOLAR DISORDER
     Route: 048
  4. SEROQUEL XR [Suspect]
     Route: 048
  5. LEXAPRO [Concomitant]

REACTIONS (5)
  - URINARY HESITATION [None]
  - VOMITING [None]
  - NAUSEA [None]
  - DRUG WITHDRAWAL SYNDROME [None]
  - PALPITATIONS [None]
